FAERS Safety Report 15149467 (Version 1)
Quarter: 2018Q3

REPORT INFORMATION
  Report Type: Spontaneous
  Country: US (occurrence: US)
  Receive Date: 20180716
  Receipt Date: 20180716
  Transmission Date: 20181010
  Serious: Yes (Other)
  Sender: FDA-Public Use
  Company Number: US-TEVA-2018-US-926511

PATIENT
  Age: 82 Year
  Sex: Male

DRUGS (2)
  1. DEXAMETHASONE. [Suspect]
     Active Substance: DEXAMETHASONE
     Indication: NEUROMYELITIS OPTICA SPECTRUM DISORDER
     Route: 042
  2. PREDNISONE. [Suspect]
     Active Substance: PREDNISONE
     Route: 048

REACTIONS (4)
  - Obstructive airways disorder [Unknown]
  - Psychotic disorder [Unknown]
  - Hallucination [Unknown]
  - Angioedema [Unknown]
